FAERS Safety Report 7426754-8 (Version None)
Quarter: 2011Q2

REPORT INFORMATION
  Report Type: 
  Country: None (occurrence: None)
  Receive Date: 20110420
  Receipt Date: 20110419
  Transmission Date: 20111010
  Serious: Yes (Death)
  Sender: FDA-Public Use
  Company Number: PHHY2011GB27595

PATIENT
  Age: 65 Year
  Sex: Male

DRUGS (9)
  1. ONDANSETRON [Suspect]
     Dosage: 8 MG, UNK
     Route: 048
  2. MS CONTIN [Suspect]
     Dosage: 30 MG, UNK
     Route: 048
  3. PEMETREXED [Suspect]
     Dosage: UNK UKN, UNK
     Dates: start: 20101221, end: 20110225
  4. CISPLATIN [Suspect]
     Dosage: UNK UKN, UNK
     Route: 042
     Dates: start: 20101221, end: 20110225
  5. DALTEPARIN SODIUM [Suspect]
     Indication: LUNG NEOPLASM MALIGNANT
     Dosage: UNK UKN, UNK
     Dates: start: 20101220, end: 20110225
  6. APREPITANT [Suspect]
     Route: 048
     Dates: start: 20110225, end: 20110225
  7. TAZOCIN [Concomitant]
     Route: 042
  8. ACETAMINOPHEN [Concomitant]
     Dosage: 1 G, BID
     Route: 048
  9. DEXAMETHASONE [Suspect]
     Dosage: 4 MG, UNK
     Route: 048
     Dates: end: 20110225

REACTIONS (6)
  - ABDOMINAL PAIN [None]
  - LUNG CANCER METASTATIC [None]
  - LARGE INTESTINE PERFORATION [None]
  - NAUSEA [None]
  - PERITONITIS [None]
  - FAECALOMA [None]
